FAERS Safety Report 9562087 (Version 2)
Quarter: 2013Q4

REPORT INFORMATION
  Report Type: Spontaneous
  Country: US (occurrence: US)
  Receive Date: 20130927
  Receipt Date: 20131016
  Transmission Date: 20140711
  Serious: Yes (Other)
  Sender: FDA-Public Use
  Company Number: US-009507513-1309USA010896

PATIENT
  Sex: Male

DRUGS (2)
  1. REBETOL [Suspect]
     Indication: HEPATITIS C
     Dosage: UNK
     Route: 048
     Dates: start: 20070105, end: 20071109
  2. PEGASYS [Suspect]
     Indication: HEPATITIS C
     Dosage: UNK
     Dates: start: 20070105, end: 20071109

REACTIONS (5)
  - Alcohol use [Unknown]
  - Porphyria [Unknown]
  - Blood test abnormal [Unknown]
  - Skin disorder [Unknown]
  - Anaemia [Unknown]
